FAERS Safety Report 12636684 (Version 4)
Quarter: 2016Q3

REPORT INFORMATION
  Report Type: Spontaneous
  Country: BR (occurrence: BR)
  Receive Date: 20160809
  Receipt Date: 20160913
  Transmission Date: 20161109
  Serious: Yes (Hospitalization, Other)
  Sender: FDA-Public Use
  Company Number: BR-AMGEN-BRASP2016097618

PATIENT
  Age: 36 Year
  Sex: Female

DRUGS (1)
  1. ENBREL [Suspect]
     Active Substance: ETANERCEPT
     Indication: PRODUCT USED FOR UNKNOWN INDICATION
     Dosage: UNK
     Route: 065
     Dates: start: 20160517, end: 2016

REACTIONS (7)
  - Injection site haemorrhage [Unknown]
  - Wrong technique in product usage process [Unknown]
  - Renal pain [Unknown]
  - Pain [Unknown]
  - Nephrolithiasis [Not Recovered/Not Resolved]
  - Renal disorder [Unknown]
  - Injection site pain [Unknown]

NARRATIVE: CASE EVENT DATE: 2016
